FAERS Safety Report 11151602 (Version 1)
Quarter: 2015Q2

REPORT INFORMATION
  Report Type: Report from Study
  Country: JP (occurrence: JP)
  Receive Date: 20150601
  Receipt Date: 20150601
  Transmission Date: 20150821
  Serious: Yes (Death, Life-Threatening, Other)
  Sender: FDA-Public Use
  Company Number: JP-SA-THYM-1002026

PATIENT
  Age: 30 Year
  Sex: Female
  Weight: 45 kg

DRUGS (40)
  1. THYMOGLOBULINE [Suspect]
     Active Substance: LAPINE T-LYMPHOCYTE IMMUNE GLOBULIN
     Indication: BONE MARROW CONDITIONING REGIMEN
     Dosage: 50 MG, QD
     Route: 042
     Dates: start: 20100609, end: 20100610
  2. VORICONAZOLE. [Concomitant]
     Active Substance: VORICONAZOLE
     Indication: ANTIFUNGAL PROPHYLAXIS
     Dosage: UNK
     Dates: start: 20100707, end: 20100820
  3. ROXITHROMYCIN [Concomitant]
     Active Substance: ROXITHROMYCIN
     Indication: ANTIBIOTIC PROPHYLAXIS
     Dosage: UNK
     Dates: start: 20100710, end: 20100825
  4. DIAZEPAM. [Concomitant]
     Active Substance: DIAZEPAM
     Indication: HYPERVENTILATION
     Dosage: UNK
     Dates: start: 20100908, end: 20101111
  5. CLOBAZAM [Concomitant]
     Active Substance: CLOBAZAM
     Indication: CONVULSION PROPHYLAXIS
     Dosage: UNK
     Dates: start: 20101113
  6. TACROLIMUS. [Concomitant]
     Active Substance: TACROLIMUS
     Indication: PROPHYLAXIS AGAINST GRAFT VERSUS HOST DISEASE
     Dosage: UNK
     Dates: start: 20100609, end: 20100710
  7. MEROPENEM TRIHYDRATE [Concomitant]
     Active Substance: MEROPENEM
     Indication: PROPHYLAXIS
     Dosage: UNK
     Dates: start: 20100907, end: 20100924
  8. RISPERIDONE. [Concomitant]
     Active Substance: RISPERIDONE
     Indication: HYPERVENTILATION
     Dosage: UNK
     Dates: start: 20100908, end: 20101110
  9. TEICOPLANIN [Concomitant]
     Active Substance: TEICOPLANIN
     Indication: INFECTION PROPHYLAXIS
     Dosage: UNK
     Dates: start: 20100626, end: 20100716
  10. PREDNISONE ACETATE [Concomitant]
     Active Substance: PREDNISONE ACETATE
     Indication: GRAFT VERSUS HOST DISEASE
     Dosage: UNK
     Dates: start: 20100815
  11. MELPHALAN [Concomitant]
     Active Substance: MELPHALAN
     Indication: BONE MARROW CONDITIONING REGIMEN
     Dosage: 70 MG/M2, QD
  12. FAMOTIDINE. [Concomitant]
     Active Substance: FAMOTIDINE
     Indication: PROPHYLAXIS AGAINST GASTROINTESTINAL ULCER
     Dosage: UNK
     Dates: start: 20100609, end: 20100625
  13. DOPAMINE HYDROCHLORIDE. [Concomitant]
     Active Substance: DOPAMINE HYDROCHLORIDE
     Indication: BLOOD ANTIDIURETIC HORMONE
     Dosage: UNK
     Dates: start: 20100818, end: 20100827
  14. URSODEOXYCHOLIC ACID [Concomitant]
     Active Substance: URSODIOL
     Indication: PROPHYLAXIS
     Dosage: UNK
     Dates: start: 20100609
  15. FLUCONAZOLE. [Concomitant]
     Active Substance: FLUCONAZOLE
     Indication: ANTIFUNGAL PROPHYLAXIS
     Dosage: UNK
     Dates: start: 20100609, end: 20100629
  16. HEPARIN SODIUM. [Concomitant]
     Active Substance: HEPARIN SODIUM
     Indication: PRODUCT USED FOR UNKNOWN INDICATION
     Dosage: UNK
     Dates: start: 20100609, end: 20100713
  17. OMEPRAZOLE. [Concomitant]
     Active Substance: OMEPRAZOLE
     Indication: PROPHYLAXIS AGAINST GASTROINTESTINAL ULCER
     Dosage: UNK
     Dates: start: 20100116, end: 20100706
  18. ANTITHROMBIN III [Concomitant]
     Active Substance: ANTITHROMBIN III HUMAN
     Indication: SUPPLEMENTATION THERAPY
     Dosage: UNK
     Dates: start: 20100820, end: 20100822
  19. GRENOL [Concomitant]
     Indication: INTRACRANIAL HYPOTENSION
     Dosage: UNK
     Dates: start: 20101112
  20. FLUDARABINE PHOSPHATE. [Concomitant]
     Active Substance: FLUDARABINE PHOSPHATE
     Indication: BONE MARROW CONDITIONING REGIMEN
     Dosage: 30 MG/M2, QD
     Dates: start: 20100603, end: 20100608
  21. MICONAZOLE NITRATE. [Concomitant]
     Active Substance: MICONAZOLE NITRATE
     Indication: ORAL CANDIDIASIS
     Dosage: UNK
     Dates: start: 20101021, end: 20101027
  22. PHENOBARBITAL. [Concomitant]
     Active Substance: PHENOBARBITAL
     Indication: CONVULSION PROPHYLAXIS
     Dosage: UNK
     Dates: start: 20101113
  23. CEFEPIME HYDROCHLORIDE. [Concomitant]
     Active Substance: CEFEPIME HYDROCHLORIDE
     Indication: INFECTION PROPHYLAXIS
     Dosage: UNK
     Dates: start: 20100609, end: 20100625
  24. IMIPENEM [Concomitant]
     Active Substance: IMIPENEM
     Indication: INFECTION PROPHYLAXIS
     Dosage: UNK
     Dates: start: 20100626, end: 20100716
  25. FOSCARNET SODIUM. [Concomitant]
     Active Substance: FOSCARNET SODIUM
     Indication: ANTIVIRAL PROPHYLAXIS
     Dosage: UNK
     Dates: start: 20100626, end: 20100706
  26. FILGRASTIM [Concomitant]
     Active Substance: FILGRASTIM
     Indication: WHITE BLOOD CELL COUNT INCREASED
     Dosage: UNK
     Dates: start: 20100923, end: 20101001
  27. CYTARABINE. [Concomitant]
     Active Substance: CYTARABINE
     Indication: BONE MARROW CONDITIONING REGIMEN
     Dosage: 1 G/M2, UNK DOSE:1 GRAM(S)/SQUARE METER
  28. ACICLOVIR [Concomitant]
     Active Substance: ACYCLOVIR
     Indication: ANTIVIRAL PROPHYLAXIS
     Dosage: UNK
     Dates: start: 20100609, end: 20100620
  29. VALACICLOVIR HYDROCHLORIDE [Concomitant]
     Active Substance: VALACYCLOVIR HYDROCHLORIDE
     Indication: ANTIVIRAL PROPHYLAXIS
     Dosage: UNK
     Dates: start: 20101002, end: 20101101
  30. AMPHOTERICIN B. [Concomitant]
     Active Substance: AMPHOTERICIN B
     Indication: PNEUMONIA FUNGAL
     Dosage: UNK
     Dates: start: 20101213
  31. FUROSEMIDE. [Concomitant]
     Active Substance: FUROSEMIDE
     Indication: OEDEMA
     Dosage: UNK
     Dates: start: 20100707, end: 20100718
  32. MYCOPHENOLATE MOFETIL. [Concomitant]
     Active Substance: MYCOPHENOLATE MOFETIL
     Indication: PROPHYLAXIS AGAINST GRAFT VERSUS HOST DISEASE
     Dosage: UNK
     Dates: start: 20100902
  33. LANSOPRAZOLE. [Concomitant]
     Active Substance: LANSOPRAZOLE
     Indication: PROPHYLAXIS AGAINST GASTROINTESTINAL ULCER
     Dosage: UNK
     Dates: start: 20101113
  34. TACROLIMUS. [Concomitant]
     Active Substance: TACROLIMUS
     Indication: PREMEDICATION
     Dosage: UNK
     Dates: start: 20100609, end: 20100710
  35. LENOGRASTIM [Concomitant]
     Active Substance: LENOGRASTIM
     Indication: WHITE BLOOD CELL COUNT INCREASED
     Dosage: UNK
     Dates: start: 20100616, end: 20100622
  36. MICAFUNGIN SODIUM [Concomitant]
     Active Substance: MICAFUNGIN SODIUM
     Indication: ANTIFUNGAL PROPHYLAXIS
     Dosage: UNK
     Dates: start: 20100616, end: 20100706
  37. ACICLOVIR [Concomitant]
     Active Substance: ACYCLOVIR
     Indication: ANTIVIRAL PROPHYLAXIS
     Dosage: UNK
     Dates: start: 20100616, end: 20100625
  38. THROMBOMODULIN ALFA [Concomitant]
     Active Substance: THROMBOMODULIN ALFA
     Indication: DISSEMINATED INTRAVASCULAR COAGULATION
     Dosage: UNK
     Dates: start: 20101201, end: 20101207
  39. ZOSYN [Concomitant]
     Active Substance: PIPERACILLIN SODIUM\TAZOBACTAM SODIUM
     Indication: PROPHYLAXIS
     Dosage: UNK
     Dates: start: 20100831, end: 20100910
  40. METHYLPREDNISOLONE. [Concomitant]
     Active Substance: METHYLPREDNISOLONE
     Indication: PROPHYLAXIS AGAINST GRAFT VERSUS HOST DISEASE

REACTIONS (6)
  - Sepsis [Recovered/Resolved]
  - Interstitial lung disease [Fatal]
  - Post transplant lymphoproliferative disorder [Not Recovered/Not Resolved]
  - Sepsis [Recovered/Resolved]
  - Cytomegalovirus test positive [Recovered/Resolved]
  - Viral haemorrhagic cystitis [Recovered/Resolved]

NARRATIVE: CASE EVENT DATE: 20100624
